FAERS Safety Report 24670322 (Version 4)
Quarter: 2025Q1

REPORT INFORMATION
  Report Type: Spontaneous
  Country: US (occurrence: US)
  Receive Date: 20241127
  Receipt Date: 20250123
  Transmission Date: 20250409
  Serious: No
  Sender: BIOGEN
  Company Number: US-BIOGEN-2024BI01291788

PATIENT
  Sex: Female

DRUGS (11)
  1. PLEGRIDY [Suspect]
     Active Substance: PEGINTERFERON BETA-1A
     Indication: Multiple sclerosis
     Route: 050
  2. PLEGRIDY [Suspect]
     Active Substance: PEGINTERFERON BETA-1A
  3. TOPIRAMATE [Concomitant]
     Active Substance: TOPIRAMATE
     Route: 050
  4. PROPRANOLOL [Concomitant]
     Active Substance: PROPRANOLOL HYDROCHLORIDE
     Route: 050
  5. PROZAC [Concomitant]
     Active Substance: FLUOXETINE HYDROCHLORIDE
     Route: 050
  6. GABAPENTIN [Concomitant]
     Active Substance: GABAPENTIN
     Route: 050
  7. BACLOFEN [Concomitant]
     Active Substance: BACLOFEN
     Route: 050
  8. PREDNISONE [Concomitant]
     Active Substance: PREDNISONE
     Route: 050
  9. METHOCARBAMOL [Concomitant]
     Active Substance: METHOCARBAMOL
     Route: 050
  10. LIDOCAINE [Concomitant]
     Active Substance: LIDOCAINE
     Route: 050
  11. KETAMINE [Concomitant]
     Active Substance: KETAMINE
     Route: 050

REACTIONS (1)
  - Influenza like illness [Unknown]
